FAERS Safety Report 7961238-X (Version None)
Quarter: 2011Q4

REPORT INFORMATION
  Report Type: 
  Country: None (occurrence: None)
  Receive Date: 20111201
  Receipt Date: 20111201
  Transmission Date: 20120403
  Serious: Yes (Hospitalization)
  Sender: FDA-Public Use
  Company Number: None

PATIENT
  Sex: Male
  Weight: 78 kg

DRUGS (3)
  1. CARBOPLATIN [Suspect]
     Dosage: 700 MG
  2. PACLITAXEL [Suspect]
     Dosage: 394 MG
  3. BEVACIZUMAB (RHUMAB VEGF) [Suspect]
     Dosage: 1170 MG

REACTIONS (2)
  - DIVERTICULITIS [None]
  - LARGE INTESTINE PERFORATION [None]
